FAERS Safety Report 4476852-6 (Version None)
Quarter: 2004Q4

REPORT INFORMATION
  Report Type: 
  Country: None (occurrence: None)
  Receive Date: 20041013
  Receipt Date: 20040929
  Transmission Date: 20050328
  Serious: Yes (Hospitalization)
  Sender: FDA-Public Use
  Company Number: FABR-10807

PATIENT
  Age: 48 Year
  Sex: Male
  Weight: 82.4 kg

DRUGS (12)
  1. FABRAZYME [Suspect]
     Indication: FABRY'S DISEASE
     Dosage: 105 MG Q2WKS IV
     Route: 042
     Dates: start: 20030318, end: 20040714
  2. FABRAZYME [Suspect]
     Indication: FABRY'S DISEASE
     Dosage: 85 MG Q2WKS IV
     Route: 042
     Dates: start: 20040728
  3. CELLCEPT [Concomitant]
  4. PREDNISONE [Concomitant]
  5. NEORAL [Concomitant]
  6. PLAVIX [Concomitant]
  7. ASPIRIN [Concomitant]
  8. RANITIDINE [Concomitant]
  9. CALCIUM [Concomitant]
  10. LISINOPRIL [Concomitant]
  11. TYLENOL [Concomitant]
  12. ZYRTEC [Concomitant]

REACTIONS (3)
  - FATIGUE [None]
  - FEELING ABNORMAL [None]
  - PNEUMONIA [None]
